FAERS Safety Report 15776553 (Version 1)
Quarter: 2018Q4

REPORT INFORMATION
  Report Type: Spontaneous
  Country: US (occurrence: US)
  Receive Date: 20181231
  Receipt Date: 20181231
  Transmission Date: 20190205
  Serious: No
  Sender: FDA-Public Use
  Company Number: US-PFIZER INC-2018530954

PATIENT
  Age: 60 Year
  Sex: Male

DRUGS (1)
  1. GENOTROPIN MQ [Suspect]
     Active Substance: SOMATROPIN
     Dosage: 0.6 MG, DAILY

REACTIONS (11)
  - Vitamin D decreased [Unknown]
  - Blood follicle stimulating hormone decreased [Unknown]
  - Blood prolactin increased [Unknown]
  - Blood creatinine decreased [Unknown]
  - Blood luteinising hormone decreased [Unknown]
  - Blood testosterone increased [Unknown]
  - Red cell distribution width increased [Unknown]
  - Blood testosterone free increased [Unknown]
  - Blood alkaline phosphatase decreased [Unknown]
  - Insulin-like growth factor increased [Unknown]
  - Low density lipoprotein increased [Unknown]

NARRATIVE: CASE EVENT DATE: 20161031
